FAERS Safety Report 15792923 (Version 1)
Quarter: 2019Q1

REPORT INFORMATION
  Report Type: Spontaneous
  Country: CA (occurrence: CA)
  Receive Date: 20190107
  Receipt Date: 20190107
  Transmission Date: 20190417
  Serious: Yes (Other)
  Sender: FDA-Public Use
  Company Number: CA-CELLTRION INC.-2018CA020693

PATIENT

DRUGS (11)
  1. INFLECTRA [Suspect]
     Active Substance: INFLIXIMAB-DYYB
     Dosage: 5 MG/KG, CYCLIC (EVERY 0,2,6 WEEKS THEN EVERY 8 WEEKS);
     Route: 042
     Dates: start: 20180508
  2. INFLECTRA [Suspect]
     Active Substance: INFLIXIMAB-DYYB
     Dosage: 10 MG/KG, (10 MG/KG EVERY 0, 2, 6); INTRAVENOUS
     Route: 042
     Dates: start: 20181227
  3. INFLECTRA [Suspect]
     Active Substance: INFLIXIMAB-DYYB
     Dosage: UNK
     Route: 065
     Dates: start: 20180730
  4. INFLECTRA [Suspect]
     Active Substance: INFLIXIMAB-DYYB
     Dosage: 10 MG/KG, EVERY 0,2,6
     Route: 065
     Dates: start: 20180921
  5. INFLECTRA [Suspect]
     Active Substance: INFLIXIMAB-DYYB
     Dosage: 10 MG/KG, EVERY 0,2,6
     Route: 042
     Dates: start: 20181005
  6. CORTISONE [Concomitant]
     Active Substance: CORTISONE\HYDROCORTISONE
     Dosage: UNK
  7. INFLECTRA [Suspect]
     Active Substance: INFLIXIMAB-DYYB
     Indication: CROHN^S DISEASE
     Dosage: 5 MG/KG, CYCLIC (EVERY 0,2,6 WEEKS THEN EVERY 8 WEEKS);
     Route: 042
     Dates: start: 20180420, end: 20180730
  8. IMURAN [Concomitant]
     Active Substance: AZATHIOPRINE
     Dosage: UNK
     Dates: start: 20180409
  9. INFLECTRA [Suspect]
     Active Substance: INFLIXIMAB-DYYB
     Dosage: 5 MG/KG (EVERY 0,2,6 WEEKS, THEN EVERY 8 WEEKS)
     Route: 042
     Dates: start: 20180921
  10. INFLECTRA [Suspect]
     Active Substance: INFLIXIMAB-DYYB
     Dosage: 10 MG/KG, (10 MG/KG EVERY 0, 2, 6); INTRAVENOUS
     Route: 042
     Dates: start: 20181030
  11. INFLECTRA [Suspect]
     Active Substance: INFLIXIMAB-DYYB
     Dosage: UNK
     Route: 065
     Dates: start: 20180601

REACTIONS (6)
  - Anal fissure [Unknown]
  - Fatigue [Unknown]
  - Dyspepsia [Unknown]
  - Abscess [Unknown]
  - Condition aggravated [Not Recovered/Not Resolved]
  - Inappropriate schedule of product administration [Unknown]
